FAERS Safety Report 16693540 (Version 1)
Quarter: 2019Q3

REPORT INFORMATION
  Report Type: Spontaneous
  Country: US (occurrence: US)
  Receive Date: 20190626
  Receipt Date: 20190626
  Transmission Date: 20191004
  Serious: No
  Sender: FDA-Public Use
  Company Number: None

PATIENT
  Age: 57 Year
  Sex: Female
  Weight: 56.7 kg

DRUGS (2)
  1. TASTY GUMMIES FULL SPECTRUM HEMP OIL ASSORTED FRUIT FLAVORS 40 GUMMIES [Suspect]
     Active Substance: CANNABIDIOL\HERBALS
     Route: 048
     Dates: start: 20190204, end: 20190613
  2. TASTY GUMMIES [Concomitant]

REACTIONS (3)
  - Product contamination physical [None]
  - Product use complaint [None]
  - Product label confusion [None]

NARRATIVE: CASE EVENT DATE: 20190618
